FAERS Safety Report 8154471-8 (Version None)
Quarter: 2012Q1

REPORT INFORMATION
  Report Type: 
  Country: None (occurrence: None)
  Receive Date: 20120221
  Receipt Date: 20120214
  Transmission Date: 20120608
  Serious: Yes (Hospitalization)
  Sender: FDA-Public Use
  Company Number: CA-B.I. PHARMACEUTICALS,INC./RIDGEFIELD-2012-CN-00366CN

PATIENT
  Age: 83 Year
  Sex: Male
  Weight: 71 kg

DRUGS (10)
  1. ACETYLSALICYLIC ACID SRT [Concomitant]
     Route: 048
  2. PRADAXA [Suspect]
     Dosage: 220 MG
     Route: 048
  3. ALENDRONATE SODIUM [Concomitant]
     Route: 048
  4. CALCITONIN SALMON [Concomitant]
     Route: 045
  5. ENALAPRIL MALEATE [Concomitant]
     Route: 048
  6. CALCIUM + VITAMIN D [Concomitant]
     Route: 048
  7. AMIODARONE HCL [Concomitant]
     Route: 048
  8. METOPROLOL TARTRATE [Concomitant]
     Route: 048
  9. ATORVASTATIN CALCIUM [Concomitant]
     Route: 048
  10. FUROSEMIDE [Concomitant]
     Route: 048

REACTIONS (5)
  - DISSEMINATED INTRAVASCULAR COAGULATION [None]
  - DIVERTICULUM [None]
  - MYELOPROLIFERATIVE DISORDER [None]
  - COAGULOPATHY [None]
  - RENAL FAILURE ACUTE [None]
